FAERS Safety Report 17392015 (Version 1)
Quarter: 2020Q1

REPORT INFORMATION
  Report Type: Other
  Country: CN (occurrence: CN)
  Receive Date: 20200207
  Receipt Date: 20200207
  Transmission Date: 20200409
  Serious: Yes (Other)
  Sender: FDA-Public Use
  Company Number: CN-GE HEALTHCARE LIFE SCIENCES-2020CSU000549

PATIENT

DRUGS (4)
  1. VISIPAQUE [Suspect]
     Active Substance: IODIXANOL
     Indication: ANGIOCARDIOGRAM
     Dosage: 10 ML, SINGLE
     Route: 013
     Dates: start: 20200116, end: 20200116
  2. VISIPAQUE [Suspect]
     Active Substance: IODIXANOL
     Indication: ARTERIOSCLEROSIS CORONARY ARTERY
  3. MOXIFLOXACIN HYDROCHLORIDE. [Suspect]
     Active Substance: MOXIFLOXACIN HYDROCHLORIDE
     Indication: PNEUMONIA
     Dosage: 20 ML, UNK
     Route: 041
     Dates: start: 20200116, end: 20200117
  4. VISIPAQUE [Suspect]
     Active Substance: IODIXANOL
     Indication: PERCUTANEOUS CORONARY INTERVENTION

REACTIONS (1)
  - Dysphoria [Recovering/Resolving]

NARRATIVE: CASE EVENT DATE: 20200116
